FAERS Safety Report 10025990 (Version 1)
Quarter: 2014Q1

REPORT INFORMATION
  Report Type: Spontaneous
  Country: NL (occurrence: None)
  Receive Date: 20140318
  Receipt Date: 20140318
  Transmission Date: 20141002
  Serious: Yes (Hospitalization)
  Sender: FDA-Public Use
  Company Number: 2014AP001953

PATIENT
  Age: 80 Year
  Sex: Female

DRUGS (14)
  1. PAROXETINE (PAROXETINE) [Suspect]
  2. PREDNISONE (PREDNISONE) [Suspect]
  3. BUMETHADINE (BUMETHADINE) [Concomitant]
  4. METFORMIN (METFORMIN) [Concomitant]
  5. SIMVASTATIN (SIMVASTATIN) [Concomitant]
  6. ACENOCOUMAROL (ACENOCOUMAROL) [Concomitant]
  7. ALENDRONATE (ALENDRONATE SODIUM) [Concomitant]
  8. CALCIUM CARBONATE (CALCIUM CARBONATE) [Concomitant]
  9. PANTOPRAZOLE (PANTOPRAZOLE) [Concomitant]
  10. CODEINE W/PARACETAMOL  (GALENIC/PARACETAMOL/CODEINE) [Concomitant]
  11. OXYCODONE (OXYCODONE) [Concomitant]
  12. TEMAZEPAM (TEMAZEPAM) [Concomitant]
  13. VITAMIN K NOS (VITAMIN K NOS) [Concomitant]
  14. DALTEPARIN (DALTEPARIN) [Concomitant]

REACTIONS (11)
  - Ocular retrobulbar haemorrhage [None]
  - Fall [None]
  - Dizziness [None]
  - Enophthalmos traumatic [None]
  - Diplopia [None]
  - Periorbital fat herniation [None]
  - Facial bones fracture [None]
  - Intraocular pressure increased [None]
  - Blindness unilateral [None]
  - Thrombin time prolonged [None]
  - Exophthalmos [None]
